FAERS Safety Report 7007813-0 (Version None)
Quarter: 2010Q3

REPORT INFORMATION
  Report Type: 
  Country: None (occurrence: None)
  Receive Date: 20100922
  Receipt Date: 20100917
  Transmission Date: 20110219
  Serious: Yes (Other)
  Sender: FDA-Public Use
  Company Number: IT-BRISTOL-MYERS SQUIBB COMPANY-15295496

PATIENT
  Age: 75 Year
  Sex: Female

DRUGS (1)
  1. COUMADIN [Suspect]
     Indication: DEEP VEIN THROMBOSIS
     Dosage: DRUG INTERRUPTED ON 1SEP10 AND RESTARTED ON REDUCED DOSAGE
     Dates: start: 20090204

REACTIONS (3)
  - DECREASED APPETITE [None]
  - DEPRESSION [None]
  - INTERNATIONAL NORMALISED RATIO INCREASED [None]
